FAERS Safety Report 12304701 (Version 2)
Quarter: 2017Q2

REPORT INFORMATION
  Report Type: Spontaneous
  Country: JP (occurrence: JP)
  Receive Date: 20160426
  Receipt Date: 20170622
  Transmission Date: 20170830
  Serious: Yes (Hospitalization, Other)
  Sender: FDA-Public Use
  Company Number: JP-SUN PHARMACEUTICAL INDUSTRIES LTD-2016R1-115038

PATIENT
  Age: 56 Year
  Sex: Female

DRUGS (2)
  1. ETIZOLAM [Suspect]
     Active Substance: ETIZOLAM
     Indication: PRODUCT USED FOR UNKNOWN INDICATION
     Dosage: 48 TAB ETIZOLAM (0.5 MG) (TREATMENT DOSAGE: 1.5-3 MG/DAY)
     Route: 065
  2. TIZANIDINE. [Suspect]
     Active Substance: TIZANIDINE
     Indication: PRODUCT USED FOR UNKNOWN INDICATION
     Dosage: 48 TAB TIZANIDINE (1 MG) (TREATMENT DOSAGE: 2-3 MG/DAY)
     Route: 065

REACTIONS (11)
  - Electrocardiogram ST segment depression [Recovering/Resolving]
  - Intentional overdose [Recovered/Resolved]
  - Sinus bradycardia [Recovered/Resolved]
  - Electrocardiogram T wave amplitude decreased [Recovering/Resolving]
  - Metabolic disorder [Unknown]
  - Sympathetic nerve injury [Recovered/Resolved]
  - Loss of consciousness [Recovered/Resolved]
  - Hypotension [Recovered/Resolved]
  - Shock [Recovered/Resolved]
  - Cardiotoxicity [Recovered/Resolved]
  - Ventricular tachycardia [Recovered/Resolved]
